FAERS Safety Report 4541001-2 (Version None)
Quarter: 2004Q4

REPORT INFORMATION
  Report Type: 
  Country: None (occurrence: None)
  Receive Date: 20041228
  Receipt Date: 20041216
  Transmission Date: 20050328
  Serious: Yes (Other)
  Sender: FDA-Public Use
  Company Number: 200211439BVD

PATIENT
  Sex: Male

DRUGS (2)
  1. LIPOBAY (CERIVASTATIN SODIUM) [Suspect]
     Dosage: ORAL
     Route: 048
  2. SORTIS [Concomitant]

REACTIONS (5)
  - BLOOD CREATININE INCREASED [None]
  - DIFFICULTY IN WALKING [None]
  - MUSCLE ATROPHY [None]
  - MYALGIA [None]
  - NEPHROPATHY [None]
